FAERS Safety Report 4387248-X (Version None)
Quarter: 2004Q2

REPORT INFORMATION
  Report Type: 
  Country: None (occurrence: None)
  Receive Date: 20040630
  Receipt Date: 20040330
  Transmission Date: 20050107
  Serious: No
  Sender: FDA-Public Use
  Company Number: US-GLAXOSMITHKLINE-A0505097A

PATIENT
  Age: 82 Year
  Sex: Female
  Weight: 59.1 kg

DRUGS (1)
  1. ADVAIR HFA [Suspect]
     Indication: ASTHMA
     Route: 055

REACTIONS (3)
  - DRY MOUTH [None]
  - HOARSENESS [None]
  - OEDEMA PERIPHERAL [None]
